FAERS Safety Report 5514256-5 (Version None)
Quarter: 2007Q4

REPORT INFORMATION
  Report Type: 
  Country: None (occurrence: None)
  Receive Date: 20071106
  Receipt Date: 20070214
  Transmission Date: 20080405
  Serious: Yes (Other)
  Sender: FDA-Public Use
  Company Number: US200702001667

PATIENT
  Age: 45 Year
  Sex: Female

DRUGS (1)
  1. PROZAC [Suspect]
     Indication: DEPRESSION
     Dates: start: 19970101

REACTIONS (2)
  - HYPERPROLACTINAEMIA [None]
  - PITUITARY TUMOUR [None]
